FAERS Safety Report 24321406 (Version 1)
Quarter: 2024Q3

REPORT INFORMATION
  Report Type: Spontaneous
  Country: US (occurrence: US)
  Receive Date: 20240916
  Receipt Date: 20240916
  Transmission Date: 20241017
  Serious: Yes (Other)
  Sender: NOVO NORDISK
  Company Number: US-NOVOPROD-1281449

PATIENT
  Sex: Female

DRUGS (1)
  1. NOVOLIN R [Suspect]
     Active Substance: INSULIN HUMAN
     Indication: Diabetes mellitus
     Dosage: 14 AM 16 LUNCH 18 DINNER
     Route: 058
     Dates: start: 2020

REACTIONS (2)
  - Stent placement [Not Recovered/Not Resolved]
  - Wrong technique in product usage process [Unknown]
